FAERS Safety Report 6750608-3 (Version None)
Quarter: 2010Q2

REPORT INFORMATION
  Report Type: 
  Country: None (occurrence: None)
  Receive Date: 20100527
  Receipt Date: 20100514
  Transmission Date: 20101027
  Serious: Yes (Other)
  Sender: FDA-Public Use
  Company Number: ES-1181930

PATIENT
  Age: 70 Year

DRUGS (3)
  1. TOBRADEX [Suspect]
     Indication: POSTOPERATIVE CARE
     Dosage: 1 GTT QID , OPHTHALMIC
     Route: 047
  2. ACULAR [Suspect]
     Indication: POSTOPERATIVE CARE
     Dosage: 1 GTT QID, OPHTHALMIC
  3. TIMOFTOL (TIMOLOL MALEATE) 0.5 % OPHTHALMIC SOLUTION EYE DROPS, SOLUTI [Suspect]
     Indication: POSTOPERATIVE CARE
     Dosage: 1 GTT QID, OPHTHALMIC
     Route: 047

REACTIONS (7)
  - BLEPHAROSPASM [None]
  - CILIARY HYPERAEMIA [None]
  - CORNEAL THINNING [None]
  - EYE PAIN [None]
  - LACRIMATION INCREASED [None]
  - OCULAR HYPERAEMIA [None]
  - ULCERATIVE KERATITIS [None]
